FAERS Safety Report 6794990-X (Version None)
Quarter: 2010Q2

REPORT INFORMATION
  Report Type: 
  Country: None (occurrence: None)
  Receive Date: 20100625
  Receipt Date: 20100610
  Transmission Date: 20101027
  Serious: Yes (Hospitalization, Other)
  Sender: FDA-Public Use
  Company Number: PHNU2008DE01339

PATIENT
  Sex: Male

DRUGS (2)
  1. GLEEVEC [Suspect]
     Indication: CHRONIC MYELOID LEUKAEMIA
     Dosage: 400 MG, QD
     Route: 048
     Dates: start: 20010101, end: 20100301
  2. PANTOZOL [Interacting]
     Indication: ABDOMINAL DISCOMFORT
     Dosage: 40 MG, BID
     Route: 048
     Dates: start: 20080201

REACTIONS (10)
  - ABDOMINAL PAIN UPPER [None]
  - ANAEMIA [None]
  - ARRHYTHMIA [None]
  - CARDIAC DISORDER [None]
  - DRUG INTERACTION [None]
  - FATIGUE [None]
  - HAEMOGLOBIN DECREASED [None]
  - HEART DISEASE CONGENITAL [None]
  - LEUKOPENIA [None]
  - NUCLEAR MAGNETIC RESONANCE IMAGING ABNORMAL [None]
